FAERS Safety Report 14595957 (Version 6)
Quarter: 2018Q2

REPORT INFORMATION
  Report Type: Spontaneous
  Country: FR (occurrence: FR)
  Receive Date: 20180303
  Receipt Date: 20180531
  Transmission Date: 20180711
  Serious: Yes (Other)
  Sender: FDA-Public Use
  Company Number: FR-AUROBINDO-AUR-APL-2018-010835

PATIENT

DRUGS (10)
  1. EMTRICITABINE [Suspect]
     Active Substance: EMTRICITABINE
     Indication: HIV INFECTION
     Dosage: UNK ()
     Route: 065
     Dates: start: 20111001
  2. EFAVIRENZ. [Interacting]
     Active Substance: EFAVIRENZ
     Indication: HIV INFECTION
     Dosage: UNK ()
     Route: 065
     Dates: start: 20111001
  3. TENOFOVIR DISOPROXIL FILM COATED TABLETS [Suspect]
     Active Substance: TENOFOVIR DISOPROXIL
     Indication: HIV INFECTION
     Dosage: UNK
     Route: 065
     Dates: start: 20111001
  4. EFAVIRENZ. [Interacting]
     Active Substance: EFAVIRENZ
     Dosage: ()
     Route: 065
     Dates: start: 201110
  5. TENOFOVIR [Concomitant]
     Active Substance: TENOFOVIR
     Indication: ANTIRETROVIRAL THERAPY
     Dosage: ()
     Route: 065
     Dates: start: 201110
  6. EMTRICITABINE [Concomitant]
     Active Substance: EMTRICITABINE
     Indication: ANTIRETROVIRAL THERAPY
     Dosage: ()
     Route: 065
     Dates: start: 201110
  7. ETONOGESTREL [Interacting]
     Active Substance: ETONOGESTREL
     Indication: CONTRACEPTION
     Dosage: ()
     Route: 065
     Dates: start: 201206
  8. EMTRIVA [Suspect]
     Active Substance: EMTRICITABINE
     Indication: HIV INFECTION
     Dosage: UNK ()
     Route: 065
     Dates: start: 201110
  9. ETONOGESTREL [Interacting]
     Active Substance: ETONOGESTREL
     Indication: CONTRACEPTIVE IMPLANT
     Dosage: UNK
     Route: 059
     Dates: start: 20120601
  10. EFAVIRENZ. [Interacting]
     Active Substance: EFAVIRENZ
     Indication: ANTIRETROVIRAL THERAPY
     Dosage: UNK ()
     Route: 065

REACTIONS (7)
  - Unwanted pregnancy [Unknown]
  - Labelled drug-drug interaction medication error [Unknown]
  - Pregnancy with implant contraceptive [Recovered/Resolved]
  - Maternal exposure during pregnancy [Recovered/Resolved]
  - Abortion induced [Unknown]
  - Product use issue [Unknown]
  - Drug interaction [Unknown]
